FAERS Safety Report 9032182 (Version 2)
Quarter: 2013Q1

REPORT INFORMATION
  Report Type: Spontaneous
  Country: FR (occurrence: FR)
  Receive Date: 20130122
  Receipt Date: 20130131
  Transmission Date: 20140127
  Serious: Yes (Death, Hospitalization)
  Sender: FDA-Public Use
  Company Number: FR-PFIZER INC-2013023748

PATIENT
  Age: 56 Year
  Sex: Male

DRUGS (1)
  1. SUTENT [Suspect]
     Indication: METASTATIC RENAL CELL CARCINOMA
     Dosage: 50 MG, CYCLIC, 1X/DAY, 4 WEEKS OUT OFF 6
     Route: 048
     Dates: start: 20120723, end: 20120819

REACTIONS (2)
  - Death [Fatal]
  - Cerebral haematoma [Not Recovered/Not Resolved]
